FAERS Safety Report 6907407-9 (Version None)
Quarter: 2010Q3

REPORT INFORMATION
  Report Type: 
  Country: None (occurrence: None)
  Receive Date: 20100805
  Receipt Date: 20100802
  Transmission Date: 20110219
  Serious: Yes (Other)
  Sender: FDA-Public Use
  Company Number: US-ASTRAZENECA-2007UW08836

PATIENT
  Age: 574 Month
  Sex: Female
  Weight: 127 kg

DRUGS (21)
  1. SEROQUEL [Suspect]
     Indication: DEPRESSION
     Route: 048
     Dates: start: 19980401, end: 19990101
  2. SEROQUEL [Suspect]
     Indication: SLEEP APNOEA SYNDROME
     Route: 048
     Dates: start: 19980401, end: 19990101
  3. SEROQUEL [Suspect]
     Dosage: 10-300 MG
     Route: 048
     Dates: start: 19990503, end: 20061101
  4. SEROQUEL [Suspect]
     Dosage: 10-300 MG
     Route: 048
     Dates: start: 19990503, end: 20061101
  5. ZYPREXA [Suspect]
     Indication: DEPRESSION
     Route: 048
     Dates: start: 19980101, end: 19980801
  6. ZYPREXA [Suspect]
     Dates: start: 19990301, end: 20040101
  7. ABILIFY [Concomitant]
  8. THORAZINE [Concomitant]
  9. LEXAPRO [Concomitant]
     Dosage: 10-20 MG
  10. EFFEXOR [Concomitant]
     Dosage: 75-150 MG
  11. TOPAMAX [Concomitant]
     Dosage: 25-150 MG
  12. XANAX [Concomitant]
     Indication: PANIC ATTACK
     Dosage: 0.25-1 MG
  13. BUSPAR [Concomitant]
     Dosage: 5-50 MG
     Dates: end: 20041122
  14. PREMARIN [Concomitant]
     Route: 048
  15. ATIVAN [Concomitant]
  16. CYMBALTA [Concomitant]
     Dosage: 30-60 MG
  17. TRAZODONE [Concomitant]
     Dosage: 50-150 MG
  18. PREDNISONE [Concomitant]
     Dosage: 10-40 MG
  19. PROZAC [Concomitant]
     Indication: DEPRESSION
  20. WELLBUTRIN [Concomitant]
  21. ASPIRIN [Concomitant]

REACTIONS (4)
  - DIABETES MELLITUS [None]
  - NEUROPATHY PERIPHERAL [None]
  - OBESITY [None]
  - TYPE 2 DIABETES MELLITUS [None]
